FAERS Safety Report 10051132 (Version 1)
Quarter: 2014Q2

REPORT INFORMATION
  Report Type: Spontaneous
  Country: US (occurrence: US)
  Receive Date: 20140401
  Receipt Date: 20140401
  Transmission Date: 20141212
  Serious: No
  Sender: FDA-Public Use
  Company Number: US-ASTRAZENECA-2013SE49591

PATIENT
  Sex: Female

DRUGS (11)
  1. NEXIUM [Suspect]
     Indication: GASTROOESOPHAGEAL REFLUX DISEASE
     Route: 048
     Dates: start: 201305
  2. PRILOSEC OTC [Suspect]
     Indication: GASTROOESOPHAGEAL REFLUX DISEASE
     Route: 048
  3. XANAX [Concomitant]
     Indication: ANXIETY
     Route: 048
     Dates: start: 2013
  4. VIIBRYD [Concomitant]
     Dosage: 40MG
     Route: 048
  5. REQUIP [Concomitant]
     Indication: RESTLESS LEGS SYNDROME
     Dosage: 3.5MG
     Route: 048
  6. PRAVASTATIN [Concomitant]
     Indication: BLOOD CHOLESTEROL ABNORMAL
     Route: 048
     Dates: start: 201208
  7. BYSTOLIC [Concomitant]
     Indication: BLOOD PRESSURE ABNORMAL
     Route: 048
     Dates: start: 201304
  8. TRIAMTERENE/HCTZ [Concomitant]
     Indication: BLOOD PRESSURE ABNORMAL
     Dosage: 37 DAILY
     Route: 048
  9. POTASSIUM [Concomitant]
     Route: 048
     Dates: start: 2010
  10. WELCHOL [Concomitant]
     Dosage: BID
     Route: 048
     Dates: start: 2013
  11. ETRADIOL [Concomitant]
     Route: 048

REACTIONS (2)
  - Dyspepsia [Unknown]
  - Drug ineffective [Not Recovered/Not Resolved]
